FAERS Safety Report 17445558 (Version 1)
Quarter: 2020Q1

REPORT INFORMATION
  Report Type: Report from Study
  Country: ES (occurrence: ES)
  Receive Date: 20200221
  Receipt Date: 20200221
  Transmission Date: 20200409
  Serious: Yes (Hospitalization)
  Sender: FDA-Public Use
  Company Number: ES-MYLANLABS-2020M1018279

PATIENT
  Age: 68 Year
  Sex: Female

DRUGS (5)
  1. BISOPROLOL [Concomitant]
     Active Substance: BISOPROLOL
     Indication: HYPERTENSION
     Dosage: 7.5 MILLIGRAM, QD
     Route: 048
     Dates: start: 201705
  2. SINTROM [Interacting]
     Active Substance: ACENOCOUMAROL
     Indication: ATRIAL FIBRILLATION
     Dosage: 1 DOSAGE FORM, PRN (AS NECESSARY)
     Route: 048
     Dates: start: 200602, end: 20190731
  3. ADIRO [Interacting]
     Active Substance: ASPIRIN
     Indication: CARDIAC FAILURE
     Dosage: 100 MILLIGRAM, QD
     Route: 048
     Dates: start: 201706, end: 201901
  4. ATORVASTATIN [Suspect]
     Active Substance: ATORVASTATIN
     Indication: DYSLIPIDAEMIA
     Dosage: 40 MILLIGRAM, QD
     Route: 048
     Dates: start: 201706, end: 20190731
  5. SERC                               /00034201/ [Concomitant]
     Active Substance: THIORIDAZINE
     Dosage: 16 MILLIGRAM, QD
     Route: 048
     Dates: start: 201812, end: 20190731

REACTIONS (2)
  - Drug interaction [Unknown]
  - Haemorrhage intracranial [Recovered/Resolved]

NARRATIVE: CASE EVENT DATE: 20190731
